FAERS Safety Report 19719593 (Version 1)
Quarter: 2021Q3

REPORT INFORMATION
  Report Type: Other
  Country: US (occurrence: US)
  Receive Date: 20210818
  Receipt Date: 20210818
  Transmission Date: 20211014
  Serious: Yes (Other)
  Sender: FDA-Public Use
  Company Number: US-ROCHE-2840130

PATIENT
  Sex: Female

DRUGS (2)
  1. XELODA [Suspect]
     Active Substance: CAPECITABINE
     Indication: RECTAL CANCER
  2. XELODA [Suspect]
     Active Substance: CAPECITABINE
     Indication: COLORECTAL CANCER METASTATIC
     Dosage: TAKE 3 TABLET(S) BY MOUTH TWICE A DAY FOR 14 DAYS
     Route: 048

REACTIONS (4)
  - Hypersomnia [Unknown]
  - Fall [Unknown]
  - Femur fracture [Unknown]
  - Fatigue [Unknown]
